FAERS Safety Report 17967374 (Version 1)
Quarter: 2020Q2

REPORT INFORMATION
  Report Type: Spontaneous
  Country: US (occurrence: US)
  Receive Date: 20200630
  Receipt Date: 20200630
  Transmission Date: 20200714
  Serious: Yes (Death, Life-Threatening, Hospitalization, Disabling)
  Sender: FDA-Public Use
  Company Number: None

PATIENT
  Age: 88 Year
  Sex: Female
  Weight: 50.85 kg

DRUGS (4)
  1. MULTIVITAMIN [Concomitant]
     Active Substance: VITAMINS
  2. RANITIDINE 150MG TABLET GENERIC FOR ZANTAC [Suspect]
     Active Substance: RANITIDINE
     Indication: DYSPEPSIA
     Dosage: ?          QUANTITY:200 TABLET(S);?
     Route: 048
     Dates: end: 20190821
  3. ATENOLOL 50MG [Concomitant]
     Active Substance: ATENOLOL
  4. AMLODIPINE [Concomitant]
     Active Substance: AMLODIPINE BESYLATE

REACTIONS (8)
  - Hepatic cancer metastatic [None]
  - Bile duct stent insertion [None]
  - Bile duct obstruction [None]
  - Gallbladder neoplasm [None]
  - Syncope [None]
  - Jaundice [None]
  - Carcinoid tumour of the gastrointestinal tract [None]
  - Small intestine carcinoma metastatic [None]

NARRATIVE: CASE EVENT DATE: 20190821
